FAERS Safety Report 5874581-5 (Version None)
Quarter: 2008Q3

REPORT INFORMATION
  Report Type: 
  Country: None (occurrence: None)
  Receive Date: 20080905
  Receipt Date: 20080905
  Transmission Date: 20090109
  Serious: Yes (Hospitalization)
  Sender: FDA-Public Use
  Company Number: None

PATIENT
  Age: 68 Year
  Sex: Male
  Weight: 70.1 kg

DRUGS (2)
  1. LORAZEPAM [Suspect]
     Indication: ANXIETY
     Dosage: 1 MG TID PO
     Route: 048
     Dates: start: 20011003, end: 20080822
  2. BUPROPION HCL [Suspect]
     Indication: DEPRESSION
     Dosage: 100 MG ONCE PO
     Route: 048
     Dates: start: 20080327, end: 20080821

REACTIONS (3)
  - CONVULSION [None]
  - DRUG WITHDRAWAL SYNDROME [None]
  - TREATMENT NONCOMPLIANCE [None]
